FAERS Safety Report 8275787-0 (Version None)
Quarter: 2012Q2

REPORT INFORMATION
  Report Type: 
  Country: None (occurrence: None)
  Receive Date: 20120410
  Receipt Date: 20120410
  Transmission Date: 20120825
  Serious: Yes (Hospitalization)
  Sender: FDA-Public Use
  Company Number: None

PATIENT
  Age: 78 Year
  Sex: Male
  Weight: 72.3 kg

DRUGS (4)
  1. NAPROXEN [Suspect]
     Dates: start: 20110713, end: 20110714
  2. BACLOFEN [Suspect]
     Indication: INFLAMMATION
     Dates: start: 20110713, end: 20110714
  3. BACLOFEN [Suspect]
     Indication: MUSCLE SPASMS
     Dates: start: 20110713, end: 20110714
  4. BACLOFEN [Suspect]
     Indication: PAIN
     Dates: start: 20110713, end: 20110714

REACTIONS (2)
  - RESPIRATORY DEPRESSION [None]
  - BRONCHOSPASM [None]
